FAERS Safety Report 4315305-2 (Version None)
Quarter: 2004Q1

REPORT INFORMATION
  Report Type: 
  Country: None (occurrence: None)
  Receive Date: 20040309
  Receipt Date: 20040223
  Transmission Date: 20041129
  Serious: Yes (Other)
  Sender: FDA-Public Use
  Company Number: 204820

PATIENT
  Age: 76 Year
  Sex: Female

DRUGS (8)
  1. RITUXAN [Suspect]
     Indication: LYMPHOMA
     Dosage: 375 MG/M2, INTRAVENOUS
     Route: 042
     Dates: start: 20030417, end: 20030911
  2. CYCLOPHOSPHAMIDE [Concomitant]
  3. DOXORUBICIN HCL [Concomitant]
  4. VINCRISTINE [Concomitant]
  5. PREDNISONE [Concomitant]
  6. TERBINAFINE HCL [Concomitant]
  7. QUININE [Concomitant]
  8. ROFECOXIB [Concomitant]

REACTIONS (2)
  - NEUTROPENIA [None]
  - WHITE BLOOD CELL COUNT DECREASED [None]
